FAERS Safety Report 10542206 (Version 1)
Quarter: 2014Q4

REPORT INFORMATION
  Report Type: Report from Study
  Country: VE (occurrence: VE)
  Receive Date: 20141024
  Receipt Date: 20141024
  Transmission Date: 20150529
  Serious: Yes (Other)
  Sender: FDA-Public Use
  Company Number: PHHY2014VE139193

PATIENT
  Age: 48 Year
  Sex: Female

DRUGS (3)
  1. MIFLONIDE [Suspect]
     Active Substance: BUDESONIDE
     Dosage: 1600 UG, QD
     Route: 055
  2. FORADIL [Suspect]
     Active Substance: FORMOTEROL FUMARATE
     Indication: ASTHMA
     Dosage: 12 UG, QD
     Route: 055
     Dates: start: 2004
  3. MIFLONIDE [Suspect]
     Active Substance: BUDESONIDE
     Indication: ASTHMA
     Dosage: 400 UG, UNK
     Route: 055

REACTIONS (2)
  - Upper respiratory tract inflammation [Recovering/Resolving]
  - Asthma [Recovering/Resolving]

NARRATIVE: CASE EVENT DATE: 201406
